FAERS Safety Report 14033440 (Version 1)
Quarter: 2017Q4

REPORT INFORMATION
  Report Type: Spontaneous
  Country: US (occurrence: US)
  Receive Date: 20171002
  Receipt Date: 20171002
  Transmission Date: 20180321
  Serious: Yes (Other)
  Sender: FDA-Public Use
  Company Number: None

PATIENT
  Age: 71 Year
  Sex: Female
  Weight: 72 kg

DRUGS (1)
  1. POTASSIUM ACETATE. [Suspect]
     Active Substance: POTASSIUM ACETATE

REACTIONS (3)
  - Product selection error [None]
  - Wrong drug administered [None]
  - Blood potassium increased [None]

NARRATIVE: CASE EVENT DATE: 20170829
